FAERS Safety Report 8858475 (Version 1)
Quarter: 2012Q4

REPORT INFORMATION
  Report Type: 
  Country: US (occurrence: US)
  Receive Date: 20121024
  Receipt Date: 20121024
  Transmission Date: 20130627
  Serious: No
  Sender: FDA-Public Use
  Company Number: US-009507513-1210USA008933

PATIENT
  Sex: Female
  Weight: 49.89 kg

DRUGS (2)
  1. IMPLANON [Suspect]
     Indication: CONTRACEPTION
     Route: 059
  2. VITAMINS (UNSPECIFIED) [Concomitant]
     Dosage: UNK
     Dates: start: 201203, end: 201210

REACTIONS (5)
  - Constipation [Not Recovered/Not Resolved]
  - Fatigue [Recovered/Resolved]
  - Asthenia [Recovered/Resolved]
  - Blood testosterone decreased [Recovered/Resolved]
  - Libido decreased [Recovered/Resolved]
